FAERS Safety Report 4346040-2 (Version None)
Quarter: 2004Q2

REPORT INFORMATION
  Report Type: 
  Country: None (occurrence: None)
  Receive Date: 20040426
  Receipt Date: 20030227
  Transmission Date: 20050107
  Serious: Yes (Other)
  Sender: FDA-Public Use
  Company Number: US-BRISTOL-MYERS SQUIBB COMPANY-12197497

PATIENT
  Age: 55 Year
  Sex: Male

DRUGS (9)
  1. ATAZANAVIR [Suspect]
     Indication: HIV INFECTION
     Route: 048
     Dates: start: 20021029, end: 20030227
  2. STAVUDINE [Suspect]
     Indication: HIV INFECTION
     Route: 048
     Dates: start: 19970401, end: 20030227
  3. TENOFOVIR [Suspect]
     Indication: HIV INFECTION
     Route: 048
     Dates: start: 20021029, end: 20030227
  4. GLYBURIDE [Concomitant]
     Dates: start: 19980401
  5. GLYBURIDE [Concomitant]
     Route: 048
     Dates: start: 19980401
  6. CO-TRIMOXAZOLE [Concomitant]
     Dosage: 800/160 MG
     Route: 048
     Dates: start: 20001102
  7. LEUCOVORIN CALCIUM [Concomitant]
     Route: 048
     Dates: start: 20001102
  8. PRAVASTATIN SODIUM [Concomitant]
     Route: 048
     Dates: start: 19980701, end: 20030227
  9. GEMFIBROZIL [Concomitant]
     Route: 048
     Dates: start: 19981202, end: 20030227

REACTIONS (11)
  - ASCITES [None]
  - BILIRUBIN CONJUGATED INCREASED [None]
  - BLOOD GLUCOSE DECREASED [None]
  - HEPATIC CIRRHOSIS [None]
  - HEPATIC FIBROSIS [None]
  - HEPATITIS CHOLESTATIC [None]
  - HEPATOTOXICITY [None]
  - HYDRONEPHROSIS [None]
  - HYPERBILIRUBINAEMIA [None]
  - NEPHROLITHIASIS [None]
  - PLATELET COUNT DECREASED [None]
